FAERS Safety Report 13834013 (Version 4)
Quarter: 2017Q3

REPORT INFORMATION
  Report Type: Report from Study
  Country: US (occurrence: US)
  Receive Date: 20170804
  Receipt Date: 20170920
  Transmission Date: 20171127
  Serious: Yes (Other)
  Sender: FDA-Public Use
  Company Number: US-CORCEPT THERAPEUTICS INC.-US-2017CRT000396

PATIENT

DRUGS (6)
  1. KORLYM [Suspect]
     Active Substance: MIFEPRISTONE
     Indication: CUSHING^S SYNDROME
     Dosage: UNK
     Route: 048
     Dates: start: 201412, end: 201505
  2. KORLYM [Suspect]
     Active Substance: MIFEPRISTONE
     Dosage: 300 MG, EVERY THREE DAYS,
     Route: 048
     Dates: start: 20170826, end: 2017
  3. KORLYM [Suspect]
     Active Substance: MIFEPRISTONE
     Dosage: UNK
     Dates: start: 2017, end: 2017
  4. KORLYM [Suspect]
     Active Substance: MIFEPRISTONE
     Dosage: 300 MG, QD
     Route: 048
     Dates: start: 20170718, end: 201707
  5. KORLYM [Suspect]
     Active Substance: MIFEPRISTONE
     Dosage: 300 MG, QOD
     Route: 048
     Dates: start: 20170517, end: 201707
  6. KORLYM [Suspect]
     Active Substance: MIFEPRISTONE
     Dosage: 300 MG, QD
     Route: 048
     Dates: start: 201707, end: 201707

REACTIONS (15)
  - Blood pressure fluctuation [Not Recovered/Not Resolved]
  - Glucose tolerance impaired [Unknown]
  - Swelling face [Unknown]
  - Weight increased [Unknown]
  - Insulin resistant diabetes [Unknown]
  - Peripheral swelling [Recovered/Resolved]
  - Sleep disorder [Unknown]
  - Fatigue [Unknown]
  - Headache [Unknown]
  - Nausea [Unknown]
  - Back pain [Unknown]
  - Blood corticotrophin decreased [Unknown]
  - Product use issue [Unknown]
  - Eye swelling [Unknown]
  - Dehydroepiandrosterone decreased [Unknown]

NARRATIVE: CASE EVENT DATE: 2015
